FAERS Safety Report 7364164-2 (Version None)
Quarter: 2011Q1

REPORT INFORMATION
  Report Type: 
  Country: None (occurrence: None)
  Receive Date: 20110321
  Receipt Date: 20110315
  Transmission Date: 20110831
  Serious: No
  Sender: FDA-Public Use
  Company Number: US-PFIZER INC-2011057331

PATIENT
  Sex: Male
  Weight: 92.971 kg

DRUGS (9)
  1. OMEPRAZOLE [Concomitant]
     Indication: DYSPEPSIA
     Dosage: 20 MG, UNK
  2. SELENIUM [Concomitant]
     Indication: COLON CANCER
     Dosage: 200 MG, UNK
  3. LISINOPRIL [Concomitant]
     Indication: HYPERTENSION
     Dosage: 20 MG, UNK
  4. CELEBREX [Suspect]
     Indication: SPINAL OSTEOARTHRITIS
  5. CELEBREX [Suspect]
     Indication: OSTEOARTHRITIS
     Dosage: 200 MG, DAILY
     Route: 048
     Dates: start: 20110201, end: 20110301
  6. TELDRIN [Concomitant]
     Indication: HYPERSENSITIVITY
     Dosage: 4 MG, UNK
  7. SIMVASTATIN [Concomitant]
     Indication: BLOOD CHOLESTEROL INCREASED
     Dosage: 40 MG, UNK
  8. ASPIRIN [Concomitant]
     Dosage: 81 MG, UNK
  9. SYNTHROID [Concomitant]
     Indication: HYPOTHYROIDISM
     Dosage: 75 UG, UNK

REACTIONS (3)
  - HYPERSENSITIVITY [None]
  - INSOMNIA [None]
  - DRUG DOSE OMISSION [None]
